FAERS Safety Report 14711154 (Version 4)
Quarter: 2018Q2

REPORT INFORMATION
  Report Type: Report from Study
  Country: KR (occurrence: KR)
  Receive Date: 20180403
  Receipt Date: 20180531
  Transmission Date: 20180711
  Serious: Yes (Death, Life-Threatening, Hospitalization)
  Sender: FDA-Public Use
  Company Number: KR-AMGEN-KORCT2018032479

PATIENT
  Age: 76 Year
  Sex: Male
  Weight: 61.5 kg

DRUGS (26)
  1. SULTAMICILLIN TOSYLATE [Concomitant]
     Active Substance: SULTAMICILLIN TOSYLATE
     Dosage: 375 MG, UNK
     Dates: start: 20180124, end: 20180130
  2. TARGIN [Concomitant]
     Active Substance: NALOXONE HYDROCHLORIDE\OXYCODONE HYDROCHLORIDE
     Dosage: 20 MG, UNK
     Dates: start: 20170620, end: 20180330
  3. NORMAL SALINE [Concomitant]
     Active Substance: SODIUM CHLORIDE
     Dosage: 500 ML, UNK, 500 MG, UNK
     Route: 042
     Dates: start: 20171214
  4. NEXIUM [Concomitant]
     Active Substance: ESOMEPRAZOLE MAGNESIUM
  5. CARFILZOMIB [Suspect]
     Active Substance: CARFILZOMIB
     Dosage: UNK UNK, PER CHEMO REGIM
     Route: 042
     Dates: start: 20180322
  6. TYLENOL ER [Concomitant]
     Active Substance: ACETAMINOPHEN
     Dosage: 650 MG, UNK
     Route: 048
     Dates: start: 20171206
  7. ZOLENIC [Concomitant]
     Dosage: 4 MG, UNK
     Route: 042
     Dates: start: 20171206
  8. ACLOVA [Concomitant]
     Dosage: 400 MG, UNK
     Dates: start: 20170302, end: 20180330
  9. PENIRAMIN [Concomitant]
     Dosage: 4 MG, UNK
     Route: 042
     Dates: start: 20171206
  10. PANORIN [Concomitant]
     Dosage: 90 MG, UNK
     Route: 042
     Dates: start: 20180103
  11. LASIX [Concomitant]
     Active Substance: FUROSEMIDE
     Dosage: 10-20MG, UNK
     Dates: start: 20180117, end: 20180307
  12. MEGACE F [Concomitant]
     Dosage: 5 ML, UNK
     Dates: start: 20180227, end: 20180327
  13. CARFILZOMIB [Suspect]
     Active Substance: CARFILZOMIB
     Dosage: 90 MG, PER CHEMO REGIM
     Route: 042
     Dates: start: 20180329
  14. NEXIUM [Concomitant]
     Active Substance: ESOMEPRAZOLE MAGNESIUM
     Dosage: 20-40 MG, UNK
     Route: 048
     Dates: start: 20171206, end: 20180330
  15. METHYLON [Concomitant]
     Active Substance: METHYLPREDNISOLONE
     Dosage: 20 MG, UNK
     Route: 048
     Dates: start: 20171208
  16. DARATUMUMAB [Suspect]
     Active Substance: DARATUMUMAB
     Dosage: UNK UNK, PER CHEMO REGIM
     Route: 042
     Dates: start: 20180322
  17. ERDOS [Concomitant]
     Active Substance: ERDOSTEINE
     Dosage: 300 MG, UNK
     Dates: start: 20180117, end: 20180219
  18. UNASYN [Concomitant]
     Active Substance: AMPICILLIN SODIUM\SULBACTAM SODIUM
     Dosage: 375 MG, UNK
     Dates: start: 20180207, end: 20180219
  19. DARATUMUMAB [Suspect]
     Active Substance: DARATUMUMAB
     Indication: PLASMA CELL MYELOMA
     Dosage: 992 MG, PER CHEMO REGIM
     Route: 042
     Dates: start: 20171206
  20. DEXAMETHASONE. [Concomitant]
     Active Substance: DEXAMETHASONE
     Indication: PLASMA CELL MYELOMA
     Dosage: 8-20 MG, UNK
     Dates: start: 20171206, end: 20180328
  21. FENTORA [Concomitant]
     Active Substance: FENTANYL CITRATE
     Dosage: 100 MUG, UNK
     Dates: start: 20171220, end: 20180102
  22. VARIDASE [Concomitant]
     Dosage: 1 UNK, UNK
     Dates: start: 20180124, end: 20180130
  23. SODIUM BICARBONATE. [Concomitant]
     Active Substance: SODIUM BICARBONATE
     Dosage: 40-80 MEQ, UNK AND 10 G, UNK
     Dates: start: 20171206, end: 20180331
  24. SINGULAIR [Concomitant]
     Active Substance: MONTELUKAST SODIUM
     Dosage: 10 MG, UNK
     Route: 048
     Dates: start: 20171206
  25. CARFILZOMIB [Suspect]
     Active Substance: CARFILZOMIB
     Indication: PLASMA CELL MYELOMA
     Dosage: 90 MG, PER CHEMO REGIM
     Route: 042
     Dates: start: 20171206
  26. NEURONTIN [Concomitant]
     Active Substance: GABAPENTIN
     Dosage: 300 MG, UNK
     Dates: start: 20170322, end: 20180330

REACTIONS (2)
  - Septic shock [Fatal]
  - Pneumocystis jirovecii pneumonia [Not Recovered/Not Resolved]

NARRATIVE: CASE EVENT DATE: 20180307
